FAERS Safety Report 9665752 (Version 1)
Quarter: 2013Q4

REPORT INFORMATION
  Report Type: Spontaneous
  Country: US (occurrence: None)
  Receive Date: 20131031
  Receipt Date: 20131031
  Transmission Date: 20140711
  Serious: Yes (Disabling)
  Sender: FDA-Public Use
  Company Number: None

PATIENT
  Age: 62 Year
  Sex: Female
  Weight: 66.23 kg

DRUGS (1)
  1. ALBUTEROL NEB NEPHRON 0.083% NEPHRON PHARMACEUTICALS CORP [Suspect]
     Indication: CHRONIC OBSTRUCTIVE PULMONARY DISEASE
     Dosage: ONE VIAL FOUR TIMES DAILY INHALATION
     Route: 055
     Dates: start: 20130710, end: 20131030

REACTIONS (5)
  - Dyspnoea [None]
  - Wheezing [None]
  - Middle insomnia [None]
  - Drug ineffective [None]
  - Poor quality drug administered [None]
